FAERS Safety Report 14620537 (Version 2)
Quarter: 2018Q2

REPORT INFORMATION
  Report Type: Report from Study
  Country: CA (occurrence: CA)
  Receive Date: 20180309
  Receipt Date: 20180504
  Transmission Date: 20180711
  Serious: Yes (Death)
  Sender: FDA-Public Use
  Company Number: CA-HLSUS-2018-CA-000358

PATIENT
  Age: 75 Year
  Sex: Male
  Weight: 71.1 kg

DRUGS (3)
  1. APIXABAN [Concomitant]
     Active Substance: APIXABAN
  2. CLOZARIL [Suspect]
     Active Substance: CLOZAPINE
     Indication: SCHIZOPHRENIA
     Dosage: 250 MG ONCE DAILY
     Route: 048
     Dates: start: 20170531, end: 20180301
  3. LORAZEPAM. [Concomitant]
     Active Substance: LORAZEPAM
     Indication: AGITATION
     Dosage: 0.5 MG ONCE DAILY AS NEEDED
     Route: 048

REACTIONS (2)
  - Fall [Fatal]
  - Coma [Not Recovered/Not Resolved]

NARRATIVE: CASE EVENT DATE: 20180227
